FAERS Safety Report 24953878 (Version 2)
Quarter: 2025Q1

REPORT INFORMATION
  Report Type: Report from Study
  Country: CA (occurrence: CA)
  Receive Date: 20250211
  Receipt Date: 20250213
  Transmission Date: 20250409
  Serious: Yes (Hospitalization)
  Sender: Unknown Manufacturer
  Company Number: CA-MIRUM PHARMACEUTICALS, INC.-CA-MIR-25-00058

PATIENT

DRUGS (1)
  1. LIVMARLI [Suspect]
     Active Substance: MARALIXIBAT CHLORIDE
     Indication: Alagille syndrome
     Dosage: 0.45 MILLILITER, QD  VIA NGT (NASOGASTRIC)
     Route: 048
     Dates: start: 20231209, end: 20250202

REACTIONS (2)
  - Liver transplant [Not Recovered/Not Resolved]
  - Off label use [Unknown]

NARRATIVE: CASE EVENT DATE: 20231209
